FAERS Safety Report 6147041-4 (Version None)
Quarter: 2009Q2

REPORT INFORMATION
  Report Type: 
  Country: None (occurrence: None)
  Receive Date: 20090407
  Receipt Date: 20090326
  Transmission Date: 20091009
  Serious: Yes (Other)
  Sender: FDA-Public Use
  Company Number: US-JNJCH-2009008790

PATIENT
  Age: 15 Year
  Sex: Female

DRUGS (2)
  1. CHILDREN'S BENADRYL DYE-FREE ALLERGY LIQUID [Suspect]
     Indication: HYPERSENSITIVITY
     Dosage: TEXT:1 OR 2 TEASPOONS 1-2 TIMES/DAY AS NEEDED
     Route: 048
  2. ALL OTHER NON-THERAPEUTIC PRODUCTS [Suspect]
     Dosage: TEXT:UNSEPCIFIED
     Route: 048

REACTIONS (3)
  - APPLICATION SITE BURN [None]
  - BURNING SENSATION [None]
  - WOUND SECRETION [None]
